FAERS Safety Report 6881747-4 (Version None)
Quarter: 2010Q3

REPORT INFORMATION
  Report Type: 
  Country: None (occurrence: None)
  Receive Date: 20100729
  Receipt Date: 20100720
  Transmission Date: 20110219
  Serious: No
  Sender: FDA-Public Use
  Company Number: 2009BI038648

PATIENT
  Age: 54 Year
  Sex: Female

DRUGS (1)
  1. TYSABRI [Suspect]
     Indication: MULTIPLE SCLEROSIS
     Route: 042
     Dates: start: 20081103

REACTIONS (8)
  - CATHETER SITE PAIN [None]
  - DIZZINESS [None]
  - POOR VENOUS ACCESS [None]
  - POST PROCEDURAL COMPLICATION [None]
  - PROCEDURAL PAIN [None]
  - PRURITUS GENERALISED [None]
  - THROMBOSIS IN DEVICE [None]
  - VOMITING [None]
